FAERS Safety Report 4372313-3 (Version None)
Quarter: 2004Q2

REPORT INFORMATION
  Report Type: 
  Country: None (occurrence: None)
  Receive Date: 20040602
  Receipt Date: 20040520
  Transmission Date: 20050107
  Serious: Yes (Hospitalization)
  Sender: FDA-Public Use
  Company Number: 2004215033JP

PATIENT
  Age: 73 Year
  Sex: Female

DRUGS (5)
  1. CABASER (CABERGOLINE) TABLET, 1-4 MG [Suspect]
     Indication: PARKINSON'S DISEASE
     Dosage: 4 MG/DAY, ORAL
     Route: 048
     Dates: end: 20040315
  2. HUSTAZOL (CLOPERASTINE HYDROCHLORIDE) [Concomitant]
  3. MUCODYNE [Concomitant]
  4. DIPYRIDAMOLE [Concomitant]
  5. TSUMURA DAISAIKOTOU [Concomitant]

REACTIONS (4)
  - BLOOD PRESSURE DECREASED [None]
  - DEPRESSED LEVEL OF CONSCIOUSNESS [None]
  - HYPONATRAEMIA [None]
  - RESPIRATORY DEPRESSION [None]
